FAERS Safety Report 21993577 (Version 1)
Quarter: 2023Q1

REPORT INFORMATION
  Report Type: Spontaneous
  Country: US (occurrence: US)
  Receive Date: 20230215
  Receipt Date: 20230215
  Transmission Date: 20230418
  Serious: Yes (Other)
  Sender: FDA-Public Use
  Company Number: US-Orient Pharma-000142

PATIENT
  Age: 70 Year
  Sex: Female
  Weight: 82.6 kg

DRUGS (9)
  1. VANCOMYCIN HYDROCHLORIDE [Suspect]
     Active Substance: VANCOMYCIN HYDROCHLORIDE
     Indication: Clostridium difficile infection
     Dosage: 1 CAPSULE QID, STRENGTH: 125MG
     Route: 048
     Dates: start: 20230127, end: 20230130
  2. GABAPENTIN [Concomitant]
     Active Substance: GABAPENTIN
     Dosage: 2 CAPSULES BID
  3. TYLENOL [Concomitant]
     Active Substance: ACETAMINOPHEN
     Dosage: 2 CAPSULES BID
  4. PROZAC [Concomitant]
     Active Substance: FLUOXETINE HYDROCHLORIDE
     Dosage: PM
  5. LOSARTAN [Concomitant]
     Active Substance: LOSARTAN
     Dosage: PM
  6. METOPROLOL [Concomitant]
     Active Substance: METOPROLOL
     Dosage: PM
  7. OXYGEN [Concomitant]
     Active Substance: OXYGEN
     Dosage: PM
  8. VITAMIN D3 [Concomitant]
     Active Substance: CHOLECALCIFEROL
  9. MECLIZINE [Concomitant]
     Active Substance: MECLIZINE HYDROCHLORIDE
     Dosage: PRN

REACTIONS (5)
  - Rectal haemorrhage [Recovered/Resolved]
  - Proctalgia [Recovered/Resolved]
  - Dysuria [Recovered/Resolved]
  - Diarrhoea [Not Recovered/Not Resolved]
  - Drug hypersensitivity [Unknown]

NARRATIVE: CASE EVENT DATE: 20230130
